FAERS Safety Report 14144721 (Version 1)
Quarter: 2020Q3

REPORT INFORMATION
  Report Type: Spontaneous
  Country: SG (occurrence: SG)
  Receive Date: 20171031
  Receipt Date: 20171031
  Transmission Date: 20201105
  Serious: Yes (Other)
  Sender: FDA-Public Use
  Company Number: SG-ROCHE-2010641

PATIENT

DRUGS (1)
  1. ALECTINIB. [Suspect]
     Active Substance: ALECTINIB
     Indication: LUNG ADENOCARCINOMA
     Dosage: FULL DOSE OF ALECTINIB FOR 8 WEEKS
     Route: 065

REACTIONS (1)
  - Haemolytic anaemia [Recovered/Resolved]
